FAERS Safety Report 10744615 (Version 1)
Quarter: 2015Q1

REPORT INFORMATION
  Report Type: Spontaneous
  Country: US (occurrence: None)
  Receive Date: 20150126
  Receipt Date: 20150126
  Transmission Date: 20150721
  Serious: Yes (Life-Threatening, Other)
  Sender: FDA-Public Use
  Company Number: None

PATIENT
  Age: 27 Year
  Sex: Female

DRUGS (1)
  1. IMPLANON [Suspect]
     Active Substance: ETONOGESTREL
     Dates: start: 20120228

REACTIONS (13)
  - Fatigue [None]
  - Dysmenorrhoea [None]
  - Salpingectomy [None]
  - Ultrasound uterus abnormal [None]
  - Flatulence [None]
  - Amenorrhoea [None]
  - Cyst [None]
  - Medical device complication [None]
  - Abdominal pain [None]
  - Abdominal distension [None]
  - Fallopian tube disorder [None]
  - Menstrual disorder [None]
  - Fibrosis [None]

NARRATIVE: CASE EVENT DATE: 20140905
